FAERS Safety Report 5902029-0 (Version None)
Quarter: 2008Q3

REPORT INFORMATION
  Report Type: 
  Country: None (occurrence: None)
  Receive Date: 20080909
  Receipt Date: 20080219
  Transmission Date: 20090109
  Serious: Yes (Other)
  Sender: FDA-Public Use
  Company Number: US-WYE-H02711208

PATIENT
  Age: 27 Year
  Sex: Female

DRUGS (1)
  1. ADVIL [Suspect]
     Indication: PROCEDURAL PAIN
     Dosage: 3 LIQUI-GELS EVERY 1.5 TO 2 HOURS AS NEEDED PER DOCTOR'S INSTRUCTIONS, ORAL
     Route: 048
     Dates: start: 20080217

REACTIONS (3)
  - APHTHOUS STOMATITIS [None]
  - CANDIDIASIS [None]
  - SWOLLEN TONGUE [None]
